FAERS Safety Report 5303623-0 (Version None)
Quarter: 2007Q2

REPORT INFORMATION
  Report Type: 
  Country: None (occurrence: None)
  Receive Date: 20070420
  Receipt Date: 20070409
  Transmission Date: 20071010
  Serious: Yes (Life-Threatening, Hospitalization)
  Sender: FDA-Public Use
  Company Number: CA-PFIZER INC-2007022295

PATIENT
  Sex: Male
  Weight: 99 kg

DRUGS (6)
  1. EXUBERA [Suspect]
     Indication: DIABETES MELLITUS
     Dosage: TEXT:0-5 MG;0-5 MG-FREQ:TID-QID:DAILY
     Route: 055
     Dates: start: 20060530, end: 20070315
  2. FRAGMIN [Concomitant]
  3. WARFARIN SODIUM [Concomitant]
  4. NEXIUM [Concomitant]
  5. LYRICA [Concomitant]
  6. AMITRIPTYLINE HCL [Concomitant]
     Indication: NEUROPATHY

REACTIONS (2)
  - LOSS OF CONSCIOUSNESS [None]
  - PNEUMONIA [None]
